FAERS Safety Report 6262026-5 (Version None)
Quarter: 2009Q3

REPORT INFORMATION
  Report Type: 
  Country: None (occurrence: None)
  Receive Date: 20090707
  Receipt Date: 20090707
  Transmission Date: 20100115
  Serious: Yes (Other)
  Sender: FDA-Public Use
  Company Number: None

PATIENT
  Age: 73 Year
  Sex: Male
  Weight: 79.3795 kg

DRUGS (2)
  1. EXELON [Suspect]
     Indication: MEMORY IMPAIRMENT
     Dosage: ON BACK DAILY
     Dates: start: 20090530, end: 20090608
  2. GALANTAMINE 8 MG [Suspect]
     Indication: MEMORY IMPAIRMENT
     Dosage: BY MOUTH DAILY
     Route: 048
     Dates: start: 20090613, end: 20090630

REACTIONS (4)
  - APPLICATION SITE REACTION [None]
  - BALANCE DISORDER [None]
  - DIZZINESS [None]
  - DRUG INTERACTION [None]
